FAERS Safety Report 5909890-4 (Version None)
Quarter: 2008Q4

REPORT INFORMATION
  Report Type: 
  Country: None (occurrence: None)
  Receive Date: 20081007
  Receipt Date: 20080930
  Transmission Date: 20090506
  Serious: Yes (Hospitalization, Other)
  Sender: FDA-Public Use
  Company Number: PHHY2008JP21839

PATIENT
  Age: 70 Year
  Sex: Male

DRUGS (2)
  1. CYCLOSPORINE [Suspect]
     Indication: PSORIASIS
     Dosage: UNK
     Route: 048
     Dates: start: 19960101
  2. PUVA [Suspect]
     Indication: PSORIASIS
     Dosage: 247 J/CM2 OVER 19 YEARS
     Dates: start: 19870101

REACTIONS (5)
  - ACTINIC KERATOSIS [None]
  - BASAL CELL CARCINOMA [None]
  - BOWEN'S DISEASE [None]
  - SKIN NEOPLASM EXCISION [None]
  - SQUAMOUS CELL CARCINOMA [None]
